FAERS Safety Report 5174442-3 (Version None)
Quarter: 2006Q4

REPORT INFORMATION
  Report Type: 
  Country: None (occurrence: None)
  Receive Date: 20061206
  Receipt Date: 20061124
  Transmission Date: 20070319
  Serious: Yes (Hospitalization)
  Sender: FDA-Public Use
  Company Number: 2006137480

PATIENT
  Age: 64 Year
  Sex: Male

DRUGS (6)
  1. SUTENT [Suspect]
     Indication: RENAL CELL CARCINOMA STAGE UNSPECIFIED
     Dosage: 25 MG (25 MG, 1 IN 1 D), ORAL
     Route: 048
     Dates: start: 20060210
  2. MEDROL [Concomitant]
  3. TORADOL [Concomitant]
  4. RANITIDINE [Concomitant]
  5. MS CONTIN [Concomitant]
  6. GABAPENTIN [Concomitant]

REACTIONS (1)
  - CHOLECYSTITIS [None]
